FAERS Safety Report 18173807 (Version 1)
Quarter: 2020Q3

REPORT INFORMATION
  Report Type: Report from Study
  Country: US (occurrence: US)
  Receive Date: 20200819
  Receipt Date: 20200819
  Transmission Date: 20201103
  Serious: Yes (Hospitalization)
  Sender: FDA-Public Use
  Company Number: US-ACTELION-A-US2020-204044

PATIENT
  Age: 64 Year
  Sex: Female

DRUGS (14)
  1. LINZESS [Concomitant]
     Active Substance: LINACLOTIDE
  2. BUMEX [Concomitant]
     Active Substance: BUMETANIDE
  3. METOPROLOL. [Concomitant]
     Active Substance: METOPROLOL
  4. ESOMEPRAZOLE. [Concomitant]
     Active Substance: ESOMEPRAZOLE MAGNESIUM
  5. POTASSIUM CHLORIDE. [Concomitant]
     Active Substance: POTASSIUM CHLORIDE
  6. OPSUMIT [Suspect]
     Active Substance: MACITENTAN
     Indication: PULMONARY ARTERIAL HYPERTENSION
     Dosage: 10 MG, QD
     Route: 048
     Dates: start: 20200319, end: 20200803
  7. ASPIRIN. [Concomitant]
     Active Substance: ASPIRIN
  8. SPIRONOLACTONE. [Concomitant]
     Active Substance: SPIRONOLACTONE
  9. LISINOPRIL. [Concomitant]
     Active Substance: LISINOPRIL
  10. ELIQUIS [Concomitant]
     Active Substance: APIXABAN
  11. VITAMIN B12 [Concomitant]
     Active Substance: CYANOCOBALAMIN
     Dosage: INJECTION
  12. HYDROCODONE [Concomitant]
     Active Substance: HYDROCODONE
  13. POTASSIUM [Concomitant]
     Active Substance: POTASSIUM
  14. SILDENAFIL. [Concomitant]
     Active Substance: SILDENAFIL

REACTIONS (18)
  - Paranasal sinus hypersecretion [Not Recovered/Not Resolved]
  - Dizziness [Not Recovered/Not Resolved]
  - Gallbladder operation [Unknown]
  - Nasal congestion [Not Recovered/Not Resolved]
  - Dyspepsia [Unknown]
  - Cholelithiasis [Unknown]
  - Hypersensitivity [Not Recovered/Not Resolved]
  - Decreased appetite [Unknown]
  - Heart rate decreased [Not Recovered/Not Resolved]
  - Headache [Unknown]
  - Sinus congestion [Unknown]
  - Insomnia [Unknown]
  - Nausea [Not Recovered/Not Resolved]
  - Gastrooesophageal reflux disease [Not Recovered/Not Resolved]
  - Abdominal pain [Unknown]
  - Product dose omission issue [Unknown]
  - Sinus disorder [Not Recovered/Not Resolved]
  - Heart rate abnormal [Not Recovered/Not Resolved]

NARRATIVE: CASE EVENT DATE: 20200327
